FAERS Safety Report 9843058 (Version 1)
Quarter: 2013Q4

REPORT INFORMATION
  Report Type: Spontaneous
  Country: US (occurrence: None)
  Receive Date: 20131219
  Receipt Date: 20131219
  Transmission Date: 20140711
  Serious: Yes (Hospitalization)
  Sender: FDA-Public Use
  Company Number: 163-20785-13064483

PATIENT
  Age: 61 Year
  Sex: Female
  Weight: 84.4 kg

DRUGS (17)
  1. THALOMID (THALIDOMIDE) (100 MILLIGRAM, CAPSULES) [Suspect]
     Indication: PLASMA CELL MYELOMA
     Dosage: 100 MG, 1 IN 1 D, PO
     Route: 048
     Dates: start: 200608
  2. PANTOPRAZOLE (PANTOPRAZOLE) [Concomitant]
  3. LASIX (FUROSEMIDE) [Concomitant]
  4. DEXAMETHASONE (DEXAMETHASONE) [Concomitant]
  5. SYNTHROID (LEVOTHYROXINE SODIUM) [Concomitant]
  6. AREDIA (PAMIDRONATE DISODIUM) [Concomitant]
  7. POTASSIUM CL ER (POTASSIUM CHLORIDE) [Concomitant]
  8. CLONAZEPAM (CLONAZEPAM) [Concomitant]
  9. ACYCLOVIR (ACICLOVIR) [Concomitant]
  10. FOLIC ACID (FOLIC ACID) [Concomitant]
  11. DESONIDE (DESONIDE) [Concomitant]
  12. OXYCODONE HCL (OXYCODONE HYDROCHLORIDE) [Concomitant]
  13. VITAMIN B12 (CYANOCOBALAMIN) [Concomitant]
  14. FISH OIL (FISH OIL) [Concomitant]
  15. VITAMIN D3 (COLECALCIFEROL) [Concomitant]
  16. DAPSONE (DAPSONE) [Concomitant]
  17. MYCELEX (CLOTRIMAZOLE) [Concomitant]

REACTIONS (1)
  - Thrombosis [None]
